FAERS Safety Report 15387315 (Version 3)
Quarter: 2018Q4

REPORT INFORMATION
  Report Type: Spontaneous
  Country: JP (occurrence: JP)
  Receive Date: 20180914
  Receipt Date: 20181003
  Transmission Date: 20190204
  Serious: Yes (Hospitalization, Other)
  Sender: FDA-Public Use
  Company Number: JP-PFIZER INC-2018133978

PATIENT
  Age: 41 Year
  Sex: Female

DRUGS (1)
  1. MEDROXYPROGESTERONE ACETATE. [Suspect]
     Active Substance: MEDROXYPROGESTERONE ACETATE
     Indication: INFERTILITY FEMALE
     Dosage: UNK (HIGH-DOSE)

REACTIONS (5)
  - Uterine inflammation [Unknown]
  - Arrested labour [Unknown]
  - Postpartum haemorrhage [Unknown]
  - Placenta accreta [Unknown]
  - Caesarean section [Unknown]
